FAERS Safety Report 15734830 (Version 3)
Quarter: 2019Q1

REPORT INFORMATION
  Report Type: Spontaneous
  Country: US (occurrence: US)
  Receive Date: 20181218
  Receipt Date: 20190214
  Transmission Date: 20190417
  Serious: Yes (Other)
  Sender: FDA-Public Use
  Company Number: US-BAYER-2018-234183

PATIENT
  Age: 28 Year
  Sex: Female
  Weight: 71.4 kg

DRUGS (12)
  1. MIRENA [Suspect]
     Active Substance: LEVONORGESTREL
     Indication: UTERINE HAEMORRHAGE
  2. FOLIC ACID. [Concomitant]
     Active Substance: FOLIC ACID
     Dosage: 1 MG, ONCE
     Route: 048
     Dates: start: 20181120
  3. ONDANSETRON [Concomitant]
     Active Substance: ONDANSETRON
     Dosage: 4 MG
     Route: 048
     Dates: start: 20180704
  4. MIRENA [Suspect]
     Active Substance: LEVONORGESTREL
     Indication: CONTRACEPTION
     Dosage: 20 MCG/24HR, CONT
     Route: 015
     Dates: start: 20180912
  5. DOCUSATE SODIUM. [Concomitant]
     Active Substance: DOCUSATE SODIUM
     Dosage: 100 MG
     Route: 048
     Dates: start: 20180803
  6. FERROUS SULFATE. [Concomitant]
     Active Substance: FERROUS SULFATE
     Dosage: 325 MG, ONCE
     Route: 048
     Dates: start: 20181120
  7. NORCO [Concomitant]
     Active Substance: ACETAMINOPHEN\HYDROCODONE BITARTRATE
  8. ASCORBIC ACID. [Concomitant]
     Active Substance: ASCORBIC ACID
     Dosage: 500 MG, ONCE
     Route: 048
     Dates: start: 20181120
  9. IBUPROFEN. [Concomitant]
     Active Substance: IBUPROFEN
  10. MIRENA [Suspect]
     Active Substance: LEVONORGESTREL
     Indication: UTERINE HAEMORRHAGE
  11. MIRENA [Suspect]
     Active Substance: LEVONORGESTREL
     Indication: CONTRACEPTION
  12. FEMYNOR [Concomitant]
     Active Substance: ETHINYL ESTRADIOL\NORGESTIMATE
     Dosage: UNK
     Dates: start: 20180620

REACTIONS (7)
  - Abdominal pain lower [Recovered/Resolved]
  - Vaginal discharge [Recovered/Resolved]
  - Abdominal pain [Recovered/Resolved]
  - Device dislocation [Recovered/Resolved]
  - Vaginal haemorrhage [Recovered/Resolved]
  - Menstruation irregular [None]
  - Anaemia [None]

NARRATIVE: CASE EVENT DATE: 20180620
